FAERS Safety Report 10536049 (Version 1)
Quarter: 2014Q4

REPORT INFORMATION
  Report Type: Spontaneous
  Country: US (occurrence: US)
  Receive Date: 20141022
  Receipt Date: 20141022
  Transmission Date: 20150529
  Serious: No
  Sender: FDA-Public Use
  Company Number: US-RECKITT BENCKISER PHARMACEUTICAL, INC-RB-62591-2014

PATIENT

DRUGS (1)
  1. SUBOXONE [Suspect]
     Active Substance: BUPRENORPHINE HYDROCHLORIDE\NALOXONE HYDROCHLORIDE
     Indication: DRUG DEPENDENCE
     Dosage: SUBOXONE FILM; PRESCRIBED 16 MG DAILY, BUT SOMETIMES TAKES LESS THAN PRESCRIBED (8 MG DAILY)
     Route: 060

REACTIONS (5)
  - Toothache [Recovered/Resolved]
  - Intentional underdose [Not Recovered/Not Resolved]
  - Drug screen positive [Recovered/Resolved]
  - Road traffic accident [Recovered/Resolved]
  - Dental caries [Recovered/Resolved]

NARRATIVE: CASE EVENT DATE: 20131007
